FAERS Safety Report 17293446 (Version 8)
Quarter: 2021Q1

REPORT INFORMATION
  Report Type: Spontaneous
  Country: CO (occurrence: CO)
  Receive Date: 20200121
  Receipt Date: 20210227
  Transmission Date: 20210419
  Serious: Yes (Life-Threatening, Hospitalization, Other)
  Sender: FDA-Public Use
  Company Number: CO-EMD SERONO-9140526

PATIENT
  Age: 74 Year
  Sex: Female
  Weight: 71 kg

DRUGS (10)
  1. LOSARTAN. [Suspect]
     Active Substance: LOSARTAN
     Indication: HYPERTENSION
     Route: 048
  2. ASPIRIN                            /00002701/ [Concomitant]
     Active Substance: ASPIRIN
     Indication: PRODUCT USED FOR UNKNOWN INDICATION
  3. JAKAVI [Suspect]
     Active Substance: RUXOLITINIB
     Indication: MYELOFIBROSIS
     Route: 048
     Dates: start: 201806, end: 201909
  4. ERYTHROPOIETIN [Concomitant]
     Active Substance: ERYTHROPOIETIN
     Indication: PRODUCT USED FOR UNKNOWN INDICATION
  5. JAKAVI [Suspect]
     Active Substance: RUXOLITINIB
     Dosage: DOSE INCREASE
     Route: 048
  6. METFORMIN [Suspect]
     Active Substance: METFORMIN HYDROCHLORIDE
     Indication: TYPE 1 DIABETES MELLITUS
     Route: 048
  7. JAKAVI [Suspect]
     Active Substance: RUXOLITINIB
     Dosage: DOSE REDUCED
     Route: 048
     Dates: start: 201909, end: 201911
  8. JAKAVI [Suspect]
     Active Substance: RUXOLITINIB
     Route: 048
     Dates: start: 20191212
  9. JAKAVI [Suspect]
     Active Substance: RUXOLITINIB
     Dosage: UNKNOWN DOSE AND FREQUENCY
     Route: 048
  10. JAKAVI [Suspect]
     Active Substance: RUXOLITINIB
     Route: 048

REACTIONS (21)
  - Product dose omission issue [Unknown]
  - Product supply issue [Unknown]
  - Asthenia [Unknown]
  - Myalgia [Unknown]
  - Haemoglobin increased [Unknown]
  - Neck pain [Unknown]
  - Inappropriate schedule of product administration [Unknown]
  - Dysstasia [Unknown]
  - Weight increased [Unknown]
  - Pain [Unknown]
  - Illness [Unknown]
  - Platelet count decreased [Unknown]
  - Weight decreased [Unknown]
  - Product use in unapproved indication [Unknown]
  - Chest pain [Unknown]
  - Haemoglobin decreased [Unknown]
  - General physical health deterioration [Unknown]
  - Hypertension [Recovered/Resolved]
  - Headache [Unknown]
  - Fatigue [Unknown]
  - Head injury [Unknown]

NARRATIVE: CASE EVENT DATE: 2019
